FAERS Safety Report 5004785-5 (Version None)
Quarter: 2006Q2

REPORT INFORMATION
  Report Type: 
  Country: None (occurrence: None)
  Receive Date: 20060517
  Receipt Date: 20060424
  Transmission Date: 20061013
  Serious: Yes (Hospitalization, Other)
  Sender: FDA-Public Use
  Company Number: JP-MERCK-0604USA04236

PATIENT
  Age: 36 Year
  Sex: Male

DRUGS (3)
  1. PEPCID [Suspect]
     Route: 048
     Dates: end: 20040917
  2. CEFOTIAM [Suspect]
     Route: 065
     Dates: end: 20040917
  3. SULFASALAZINE [Suspect]
     Route: 065
     Dates: end: 20040917

REACTIONS (2)
  - COLITIS ULCERATIVE [None]
  - IDIOPATHIC THROMBOCYTOPENIC PURPURA [None]
